FAERS Safety Report 17224686 (Version 1)
Quarter: 2019Q4

REPORT INFORMATION
  Report Type: Spontaneous
  Country: US (occurrence: US)
  Receive Date: 20191209
  Receipt Date: 20191209
  Transmission Date: 20200122
  Serious: No
  Sender: FDA-Public Use
  Company Number: None

PATIENT
  Age: 59 Year
  Sex: Male
  Weight: 103.87 kg

DRUGS (2)
  1. DABIGATRAN (DABIGATRAN ETEXILATE 150MG CAP, ORAL [Suspect]
     Active Substance: DABIGATRAN
     Indication: PULMONARY EMBOLISM
  2. DABIGATRAN (DABIGATRAN ETEXILATE 150MG CAP, ORAL) [Suspect]
     Active Substance: DABIGATRAN
     Indication: DEEP VEIN THROMBOSIS
     Route: 048
     Dates: start: 20180412, end: 20190307

REACTIONS (6)
  - Gingival blister [None]
  - Joint swelling [None]
  - Arthralgia [None]
  - Paraesthesia oral [None]
  - Stomatitis [None]
  - Lip swelling [None]

NARRATIVE: CASE EVENT DATE: 20190307
